FAERS Safety Report 6874740-9 (Version None)
Quarter: 2010Q3

REPORT INFORMATION
  Report Type: 
  Country: None (occurrence: None)
  Receive Date: 20100723
  Receipt Date: 20100715
  Transmission Date: 20110219
  Serious: Yes (Hospitalization)
  Sender: FDA-Public Use
  Company Number: 002438

PATIENT
  Sex: Female

DRUGS (9)
  1. LACOSAMIDE [Suspect]
     Indication: EPILEPSY
     Dosage: 100 MG BID ORAL, 250 MG, 100 MG IN THE MORNING AND 150 MG AT NIGHT ORAL; 150 MG BID ORAL
     Route: 048
     Dates: start: 20090824
  2. TAMIFLU [Concomitant]
  3. ZITHROMAX [Concomitant]
  4. KLONOPIN [Concomitant]
  5. FEMARA [Concomitant]
  6. ZOLEDRONIC ACID [Concomitant]
  7. LYRICA [Concomitant]
  8. CARBATROL [Concomitant]
  9. LEXAPRO [Concomitant]

REACTIONS (8)
  - CONVULSION [None]
  - DEPRESSION [None]
  - DRUG INTERACTION [None]
  - GAIT DISTURBANCE [None]
  - PAIN [None]
  - POLLAKIURIA [None]
  - SUICIDAL IDEATION [None]
  - TEARFULNESS [None]
